FAERS Safety Report 4840844-5 (Version None)
Quarter: 2005Q4

REPORT INFORMATION
  Report Type: 
  Country: None (occurrence: None)
  Receive Date: 20051130
  Receipt Date: 20050722
  Transmission Date: 20060501
  Serious: No
  Sender: FDA-Public Use
  Company Number: US-BRISTOL-MYERS SQUIBB COMPANY-13047675

PATIENT
  Age: 61 Year
  Sex: Male
  Weight: 89 kg

DRUGS (5)
  1. AVALIDE [Suspect]
     Indication: HYPERTENSION
  2. ASPIRIN [Concomitant]
  3. AVANDAMET [Concomitant]
  4. GLUCOTROL [Concomitant]
  5. HYTRIN [Concomitant]

REACTIONS (1)
  - HYPERGLYCAEMIA [None]
